FAERS Safety Report 12893183 (Version 5)
Quarter: 2016Q4

REPORT INFORMATION
  Report Type: Spontaneous
  Country: US (occurrence: US)
  Receive Date: 20161028
  Receipt Date: 20161209
  Transmission Date: 20170207
  Serious: Yes (Other)
  Sender: FDA-Public Use
  Company Number: US-009507513-1610USA012129

PATIENT
  Age: 19 Year
  Sex: Female
  Weight: 126.98 kg

DRUGS (1)
  1. NEXPLANON [Suspect]
     Active Substance: ETONOGESTREL
     Dosage: 1 ROD, EVERY THREE YEARS
     Route: 059
     Dates: start: 20160919

REACTIONS (4)
  - Complication associated with device [Not Recovered/Not Resolved]
  - Drug dose omission [Unknown]
  - Pregnancy with implant contraceptive [Unknown]
  - Unintended pregnancy [Unknown]

NARRATIVE: CASE EVENT DATE: 201609
